FAERS Safety Report 4981272-1 (Version None)
Quarter: 2006Q1

REPORT INFORMATION
  Report Type: 
  Country: None (occurrence: None)
  Receive Date: 20060317
  Receipt Date: 20060330
  Transmission Date: 20060701
  Serious: Yes (Hospitalization, Disabling)
  Sender: FDA-Public Use
  Company Number: THYM-10930

PATIENT
  Age: 51 Year
  Sex: Male
  Weight: 95 kg

DRUGS (14)
  1. THYMOGLOBULIN [Suspect]
     Indication: KIDNEY TRANSPLANT REJECTION
     Dates: start: 20051001
  2. THYMOGLOBULIN [Suspect]
     Indication: RENAL TRANSPLANT
     Dates: start: 20051001
  3. THYMOGLOBULIN [Suspect]
     Indication: KIDNEY TRANSPLANT REJECTION
     Dates: start: 20060318, end: 20060323
  4. THYMOGLOBULIN [Suspect]
     Indication: RENAL TRANSPLANT
     Dates: start: 20060318, end: 20060323
  5. PROGRAF [Concomitant]
  6. MYFORTIC [Concomitant]
  7. PREDNISONE TAB [Concomitant]
  8. BIDIL [Concomitant]
  9. METOPROLOL SUCCINATE [Concomitant]
  10. NEXIUM [Concomitant]
  11. MVI (MULTIVITAMIN) [Concomitant]
  12. CALCIUM CARBONATE [Concomitant]
  13. VALCYTE [Concomitant]
  14. BACTRIM [Concomitant]

REACTIONS (6)
  - ABASIA [None]
  - ACTIVITIES OF DAILY LIVING IMPAIRED [None]
  - ARTHRITIS [None]
  - SERUM SICKNESS [None]
  - SYNOVIAL FLUID RED BLOOD CELLS POSITIVE [None]
  - SYNOVIAL FLUID WHITE BLOOD CELLS POSITIVE [None]
